FAERS Safety Report 8519492-1 (Version None)
Quarter: 2012Q3

REPORT INFORMATION
  Report Type: 
  Country: None (occurrence: None)
  Receive Date: 20120718
  Receipt Date: 20120711
  Transmission Date: 20120928
  Serious: Yes (Hospitalization)
  Sender: FDA-Public Use
  Company Number: FR-PFIZER INC-2012148041

PATIENT
  Age: 61 Year
  Sex: Female

DRUGS (12)
  1. LEXOMIL [Concomitant]
     Dosage: 0.25 DF, 1X/DAY
     Route: 048
  2. ATORVASTATIN [Suspect]
     Dosage: 20 MG, 1X/DAY
     Route: 048
  3. VALSARTAN [Concomitant]
     Dosage: 160 MG, 1X/DAY
     Route: 048
  4. LANTUS [Concomitant]
     Indication: TYPE 1 DIABETES MELLITUS
     Dosage: 46 IU, 1X/DAY
     Route: 058
  5. COUMADIN [Suspect]
     Indication: MITRAL VALVE REPLACEMENT
     Dosage: 0.5 DF, 1X/DAY
     Route: 048
     Dates: end: 20120401
  6. PANTOPRAZOLE [Concomitant]
     Dosage: 1 DF, 1X/DAY
     Route: 048
  7. FLUTICASONE PROPIONATE/SALMETEROL [Concomitant]
     Dosage: UNK
     Route: 055
  8. RYTHMOL [Suspect]
     Indication: ATRIAL FIBRILLATION
     Dosage: 300 MG, 1X/DAY
     Route: 048
  9. PLAVIX [Suspect]
     Indication: MITRAL VALVE REPLACEMENT
     Dosage: 75 MG, 1X/DAY
     Route: 048
  10. ADANCOR [Concomitant]
     Indication: MYOCARDIAL ISCHAEMIA
     Dosage: 20 MG, 2X/DAY
     Route: 048
     Dates: end: 20120209
  11. LASIX [Concomitant]
     Dosage: 40 MG, 1X/DAY
     Route: 048
  12. VENTOLIN [Concomitant]
     Dosage: UNK
     Route: 055

REACTIONS (5)
  - GASTROINTESTINAL HAEMORRHAGE [None]
  - POLYP [None]
  - MELAENA [None]
  - RED BLOOD CELL COUNT DECREASED [None]
  - RECTAL HAEMORRHAGE [None]
